FAERS Safety Report 10929862 (Version 2)
Quarter: 2015Q2

REPORT INFORMATION
  Report Type: Spontaneous
  Country: GB (occurrence: None)
  Receive Date: 20150317
  Receipt Date: 20150527
  Transmission Date: 20150821
  Serious: Yes (Death, Other)
  Sender: FDA-Public Use
  Company Number: FK201501218

PATIENT
  Age: 65 Year
  Sex: Female
  Weight: 72 kg

DRUGS (16)
  1. ETOPOSIDE (MANUFACTURER UNKNOWN) (ETOPOSIDE) (ETOPOSIDE) [Suspect]
     Active Substance: ETOPOSIDE
     Indication: SMALL CELL LUNG CANCER
     Dosage: NOT OTHERWISE SPECIFIED
     Route: 042
     Dates: start: 20150117, end: 20150117
  2. DEXAMETHASONE (DEXAMETHASONE) [Concomitant]
     Active Substance: DEXAMETHASONE
  3. NYSTATIN (NYSTATIN) [Concomitant]
     Active Substance: NYSTATIN
  4. ZOPICLONE (ZOPICLONE) [Concomitant]
     Active Substance: ZOPICLONE
  5. CARBOPLATIN (MANUFACTURER UNKNOWN) (CARBOPLATIN) (CARBOPLATIN) [Suspect]
     Active Substance: CARBOPLATIN
     Indication: SMALL CELL LUNG CANCER
     Dosage: NOT OTHERWISE SPECIFIED
     Route: 042
     Dates: start: 20150117, end: 20150117
  6. ATORVASTATIN (ATORVASTATIN) [Concomitant]
     Active Substance: ATORVASTATIN
  7. FLUCONAZOLE (FLUCONAZOLE) [Concomitant]
     Active Substance: FLUCONAZOLE
  8. OMEPRAZOLE (OMEPRAZOLE) [Concomitant]
     Active Substance: OMEPRAZOLE
  9. AMOXICILLIN (AMOXICILLIN) [Concomitant]
     Active Substance: AMOXICILLIN
  10. METFORMIN [Concomitant]
     Active Substance: METFORMIN HYDROCHLORIDE
  11. ORAMORPH (MORPHINE SULFATE PENTAHYDRATE) [Concomitant]
  12. QUININE SULFATE (QUININE SULFATE) [Concomitant]
  13. AMLODIPINE BESILATE (AMLODIPINE BESILATE) [Concomitant]
     Active Substance: AMLODIPINE BESYLATE
  14. LISINOPRIL (LISINOPRIL) [Concomitant]
     Active Substance: LISINOPRIL
  15. NITROFURANTOIN (NITROFURANTOIN) [Concomitant]
     Active Substance: NITROFURANTOIN
  16. TRIMETHOPRIM (TRIMETHOPRIM) [Concomitant]
     Active Substance: TRIMETHOPRIM

REACTIONS (4)
  - Leukopenia [None]
  - Malaise [None]
  - Neutropenic sepsis [None]
  - Platelet count decreased [None]

NARRATIVE: CASE EVENT DATE: 20150123
